FAERS Safety Report 4793738-8 (Version None)
Quarter: 2005Q4

REPORT INFORMATION
  Report Type: 
  Country: None (occurrence: None)
  Receive Date: 20051006
  Receipt Date: 20050927
  Transmission Date: 20060501
  Serious: Yes (Hospitalization, Disabling)
  Sender: FDA-Public Use
  Company Number: 2005135556

PATIENT
  Age: 55 Year
  Sex: Female
  Weight: 83.9154 kg

DRUGS (2)
  1. ESTRING [Suspect]
     Indication: DYSPAREUNIA
     Dosage: VAGINAL
     Route: 067
     Dates: start: 20020101, end: 20050101
  2. ESTRING [Suspect]
     Indication: MENOPAUSAL SYMPTOMS
     Dosage: VAGINAL
     Route: 067
     Dates: start: 20020101, end: 20050101

REACTIONS (11)
  - ABASIA [None]
  - ARTHRALGIA [None]
  - CHRONIC INFLAMMATORY DEMYELINATING POLYRADICULONEUROPATHY [None]
  - DIFFICULTY IN WALKING [None]
  - DYSSTASIA [None]
  - FALL [None]
  - GUILLAIN-BARRE SYNDROME [None]
  - HYPOKINESIA [None]
  - JOINT RANGE OF MOTION DECREASED [None]
  - WEIGHT DECREASED [None]
  - WHITE BLOOD CELL COUNT DECREASED [None]
